FAERS Safety Report 17401834 (Version 1)
Quarter: 2020Q1

REPORT INFORMATION
  Report Type: Spontaneous
  Country: US (occurrence: US)
  Receive Date: 20200210
  Receipt Date: 20200210
  Transmission Date: 20200409
  Serious: No
  Sender: FDA-Public Use
  Company Number: None

PATIENT
  Age: 34 Year
  Sex: Female
  Weight: 63.9 kg

DRUGS (1)
  1. PICATO [Suspect]
     Active Substance: INGENOL MEBUTATE
     Indication: ACTINIC KERATOSIS
     Dosage: ?          QUANTITY:1 TUBE;OTHER FREQUENCY:3 DAYS IN A ROW;?
     Route: 061
     Dates: start: 20200110, end: 20200111

REACTIONS (10)
  - Therapy cessation [None]
  - Flushing [None]
  - Chemical burn [None]
  - Skin infection [None]
  - Sunburn [None]
  - Blister [None]
  - Wound secretion [None]
  - Adverse drug reaction [None]
  - Pain [None]
  - Skin discolouration [None]

NARRATIVE: CASE EVENT DATE: 20200110
